FAERS Safety Report 17319438 (Version 1)
Quarter: 2020Q1

REPORT INFORMATION
  Report Type: Spontaneous
  Country: GB (occurrence: GB)
  Receive Date: 20200124
  Receipt Date: 20200124
  Transmission Date: 20200409
  Serious: Yes (Other)
  Sender: FDA-Public Use
  Company Number: GB-BAUSCH-BL-2020-001628

PATIENT
  Age: 72 Year
  Sex: Female
  Weight: 57.15 kg

DRUGS (4)
  1. KLIOVANCE [Concomitant]
     Active Substance: ESTRADIOL\NORETHINDRONE ACETATE
     Indication: PRODUCT USED FOR UNKNOWN INDICATION
  2. BIMATOPROST. [Concomitant]
     Active Substance: BIMATOPROST
     Indication: PRODUCT USED FOR UNKNOWN INDICATION
  3. HYDROCORTISONE. [Suspect]
     Active Substance: HYDROCORTISONE
     Indication: HYPERSENSITIVITY
     Route: 061
     Dates: start: 20191227, end: 20191227
  4. MEBEVERINE [Concomitant]
     Active Substance: MEBEVERINE
     Indication: PRODUCT USED FOR UNKNOWN INDICATION

REACTIONS (5)
  - Pain [Recovering/Resolving]
  - Erythema [Recovering/Resolving]
  - Pruritus [Recovering/Resolving]
  - Condition aggravated [Recovering/Resolving]
  - Swelling [Recovering/Resolving]

NARRATIVE: CASE EVENT DATE: 20191227
